FAERS Safety Report 9473141 (Version 3)
Quarter: 2013Q4

REPORT INFORMATION
  Report Type: Spontaneous
  Country: US (occurrence: US)
  Receive Date: 20130823
  Receipt Date: 20131213
  Transmission Date: 20140711
  Serious: Yes (Hospitalization, Other)
  Sender: FDA-Public Use
  Company Number: US-BRISTOL-MYERS SQUIBB COMPANY-17477704

PATIENT
  Age: 67 Year
  Sex: Female

DRUGS (15)
  1. SPRYCEL (CML) TABS [Suspect]
     Indication: CHRONIC MYELOID LEUKAEMIA
     Dosage: SPRYCEL 50MG TABS
     Route: 048
  2. LEVOTHYROXINE [Concomitant]
  3. SIMVASTATIN [Concomitant]
  4. LASIX [Concomitant]
  5. KLOR-CON [Concomitant]
  6. ZYRTEC [Concomitant]
  7. PEPCID [Concomitant]
  8. MULTIVITAMIN [Concomitant]
  9. CALCIUM CITRATE [Concomitant]
  10. OMEGA 3 FATTY ACID [Concomitant]
  11. AMBIEN [Concomitant]
  12. L-LYSINE [Concomitant]
  13. SALINE [Concomitant]
     Dosage: SALINE NASAL SPRAY
     Route: 045
  14. IRON + FOLIC ACID [Concomitant]
  15. DUONEB [Concomitant]

REACTIONS (3)
  - Fluid retention [Unknown]
  - Angiopathy [Unknown]
  - Alopecia [Unknown]
